FAERS Safety Report 23631813 (Version 3)
Quarter: 2024Q2

REPORT INFORMATION
  Report Type: Spontaneous
  Country: US (occurrence: US)
  Receive Date: 20240314
  Receipt Date: 20240620
  Transmission Date: 20240715
  Serious: Yes (Other)
  Sender: FDA-Public Use
  Company Number: US-UCBSA-2023047395

PATIENT
  Sex: Male
  Weight: 136.46 kg

DRUGS (1)
  1. CIMZIA [Suspect]
     Active Substance: CERTOLIZUMAB PEGOL
     Indication: Ankylosing spondylitis
     Dosage: 400 MILLIGRAM, EV 4 WEEKS
     Route: 058
     Dates: start: 202310

REACTIONS (8)
  - Road traffic accident [Unknown]
  - Spinal fracture [Unknown]
  - Ankylosing spondylitis [Unknown]
  - Neck pain [Unknown]
  - Traumatic lung injury [Unknown]
  - Pain [Unknown]
  - Injection site pain [Unknown]
  - Therapeutic product effect incomplete [Unknown]
